FAERS Safety Report 23546738 (Version 1)
Quarter: 2024Q1

REPORT INFORMATION
  Report Type: Spontaneous
  Country: JP (occurrence: JP)
  Receive Date: 20240221
  Receipt Date: 20240221
  Transmission Date: 20240410
  Serious: Yes (Hospitalization, Other)
  Sender: FDA-Public Use
  Company Number: JP-ASTELLAS-2024JP001228

PATIENT
  Age: 75 Year
  Sex: Female

DRUGS (3)
  1. MIRABEGRON [Suspect]
     Active Substance: MIRABEGRON
     Indication: Product used for unknown indication
     Dosage: UNK UNK, ONCE DAILY, AFTER BREAKFAST
     Route: 048
     Dates: start: 2023
  2. TERIPARATIDE [Concomitant]
     Active Substance: TERIPARATIDE
     Indication: Product used for unknown indication
     Dosage: 1 SHOT, UNKNOWN FREQ.
     Route: 050
  3. ACTEMRA [Concomitant]
     Active Substance: TOCILIZUMAB
     Indication: Product used for unknown indication
     Dosage: 1 SHOT, UNKNOWN FREQ.
     Route: 050

REACTIONS (3)
  - Osteoporotic fracture [Unknown]
  - Blood pressure increased [Unknown]
  - Eczema [Recovered/Resolved]
